FAERS Safety Report 25487733 (Version 1)
Quarter: 2025Q2

REPORT INFORMATION
  Report Type: Report from Study
  Country: CN (occurrence: CN)
  Receive Date: 20250627
  Receipt Date: 20250627
  Transmission Date: 20250717
  Serious: Yes (Hospitalization)
  Sender: ROCHE
  Company Number: CN-ROCHE-10000318314

PATIENT
  Age: 48 Year
  Sex: Male

DRUGS (2)
  1. TECENTRIQ [Suspect]
     Active Substance: ATEZOLIZUMAB
     Indication: Hepatic cancer
     Dosage: DOSE STRENGTH: 1200MG/20ML
     Route: 042
     Dates: start: 20241120, end: 20250416
  2. AVASTIN [Suspect]
     Active Substance: BEVACIZUMAB
     Indication: Hepatic cancer
     Route: 042
     Dates: start: 20241120, end: 20250416

REACTIONS (2)
  - Duodenal perforation [Unknown]
  - Laparotomy [Unknown]

NARRATIVE: CASE EVENT DATE: 20250616
